FAERS Safety Report 7792416-0 (Version None)
Quarter: 2011Q4

REPORT INFORMATION
  Report Type: 
  Country: None (occurrence: None)
  Receive Date: 20111003
  Receipt Date: 20110927
  Transmission Date: 20120403
  Serious: Yes (Death)
  Sender: FDA-Public Use
  Company Number: JP-PFIZER INC-2011202583

PATIENT
  Age: 83 Year
  Sex: Female

DRUGS (13)
  1. GRAMALIL [Concomitant]
     Dosage: 50 MG, 3X/DAY
     Route: 048
     Dates: end: 20110822
  2. RABEPRAZOLE SODIUM [Concomitant]
     Dosage: 10 MG, 1X/DAY
     Route: 048
     Dates: end: 20110826
  3. NITRAZEPAM [Concomitant]
     Dosage: 5 MG, 1X/DAY
     Route: 048
     Dates: end: 20110822
  4. PROLMON [Concomitant]
     Dosage: 20 MG, 3X/DAY
     Route: 048
  5. LASIX [Concomitant]
     Dosage: 20 MG, 1X/DAY
     Route: 048
     Dates: end: 20110827
  6. ZYVOX [Suspect]
     Indication: STAPHYLOCOCCAL INFECTION
     Dosage: 600 MG, 2X/DAY
     Route: 041
     Dates: start: 20110827, end: 20110830
  7. ZYVOX [Suspect]
     Dosage: 600 MG, 1X/DAY
     Route: 041
     Dates: start: 20110831, end: 20110831
  8. UNASYN [Concomitant]
     Dosage: 3 G, 2X/DAY
     Route: 041
     Dates: start: 20110822, end: 20110826
  9. ARICEPT [Concomitant]
     Dosage: 5 MG, 1X/DAY
     Route: 048
     Dates: end: 20110822
  10. ALLOPURINOL [Concomitant]
     Dosage: 100 MG, 2X/DAY
     Route: 048
     Dates: end: 20110822
  11. YOUPIS [Concomitant]
     Dosage: 5 MG, 1X/DAY
     Route: 048
     Dates: end: 20110826
  12. SPIRONOLACTONE [Concomitant]
     Dosage: 50 MG, 1X/DAY
     Route: 048
     Dates: end: 20110827
  13. MUCOSTA [Concomitant]
     Dosage: 100 MG, 2X/DAY
     Route: 048
     Dates: end: 20110822

REACTIONS (3)
  - LIVER FUNCTION TEST ABNORMAL [None]
  - BLOOD CREATININE INCREASED [None]
  - URINE OUTPUT DECREASED [None]
